FAERS Safety Report 9228603 (Version 2)
Quarter: 2013Q2

REPORT INFORMATION
  Report Type: Report from Study
  Country: CN (occurrence: CN)
  Receive Date: 20130412
  Receipt Date: 20130607
  Transmission Date: 20140414
  Serious: Yes (Death, Other)
  Sender: FDA-Public Use
  Company Number: CN-ROCHE-1210489

PATIENT
  Sex: 0

DRUGS (1)
  1. ALTEPLASE [Suspect]
     Indication: ACUTE MYOCARDIAL INFARCTION
     Route: 042

REACTIONS (5)
  - Death [Fatal]
  - Myocardial infarction [Unknown]
  - Coronary revascularisation [Unknown]
  - Cardiac failure chronic [Unknown]
  - Haemorrhage [Unknown]
